FAERS Safety Report 7426022-4 (Version None)
Quarter: 2011Q2

REPORT INFORMATION
  Report Type: 
  Country: None (occurrence: None)
  Receive Date: 20110420
  Receipt Date: 20100115
  Transmission Date: 20111010
  Serious: No
  Sender: FDA-Public Use
  Company Number: US-BAYER-201011725NA

PATIENT
  Age: 20 Year
  Sex: Female

DRUGS (2)
  1. YAZ [Suspect]
     Indication: ORAL CONTRACEPTION
     Dosage: 1 DF, QD
     Dates: start: 20090101
  2. YAZ [Suspect]
     Indication: ACNE

REACTIONS (6)
  - MENORRHAGIA [None]
  - ABDOMINAL PAIN [None]
  - FLATULENCE [None]
  - HYPOMENORRHOEA [None]
  - VAGINAL HAEMORRHAGE [None]
  - ACNE [None]
